FAERS Safety Report 6450078-9 (Version None)
Quarter: 2009Q4

REPORT INFORMATION
  Report Type: 
  Country: None (occurrence: None)
  Receive Date: 20091120
  Receipt Date: 20091120
  Transmission Date: 20100525
  Serious: Yes (Hospitalization, Disabling, Other)
  Sender: FDA-Public Use
  Company Number: None

PATIENT
  Age: 63 Year
  Sex: Female
  Weight: 61.8 kg

DRUGS (14)
  1. METHOTREXATE [Suspect]
     Indication: DRUG USE FOR UNKNOWN INDICATION
     Dosage: UNKNOWN, UNKNOWN, UNKNOWN
     Route: 065
  2. SULFASALAZINE [Suspect]
     Indication: DRUG USE FOR UNKNOWN INDICATION
     Dosage: UNKNOWN, UNKNOWN, UNKNOWN
     Route: 065
  3. ENBREL [Suspect]
     Indication: TUBERCULOSIS
     Dosage: 50 MG, 1 WEEK, SUBCUTANEOUS
     Route: 058
     Dates: start: 20090406, end: 20090501
  4. PARACETAMOL PAIN (PAIN) [Concomitant]
  5. RIFATER [Concomitant]
  6. CHOLESTYRAMINE [Concomitant]
  7. CODEINE [Concomitant]
  8. CO-TRIMOXAZOLE [Concomitant]
  9. ETHAMBUTOL HYDROCHLORIDE [Concomitant]
  10. FLUOXETINE [Concomitant]
  11. MS CONTIN [Concomitant]
  12. OMEPRAZOLE [Concomitant]
  13. PYRIDOXINE [Concomitant]
  14. RAMIPRIL [Concomitant]

REACTIONS (5)
  - ANAEMIA [None]
  - BLOOD ALBUMIN DECREASED [None]
  - PLEURAL EFFUSION [None]
  - TUBERCULOSIS [None]
  - WHIPPLE'S DISEASE [None]
